FAERS Safety Report 5415180-9 (Version None)
Quarter: 2007Q3

REPORT INFORMATION
  Report Type: 
  Country: None (occurrence: None)
  Receive Date: 20070815
  Receipt Date: 20070713
  Transmission Date: 20080115
  Serious: No
  Sender: FDA-Public Use
  Company Number: A0663992A

PATIENT
  Age: 60 Year
  Sex: Male

DRUGS (5)
  1. COREG CR [Suspect]
     Indication: HYPERTENSION
     Dosage: 40MG PER DAY
     Route: 048
     Dates: start: 20070601
  2. NORVASC [Suspect]
     Dosage: 10MG PER DAY
     Dates: start: 20070601, end: 20070712
  3. TRICOR [Concomitant]
  4. ZETIA [Concomitant]
  5. WINE [Concomitant]

REACTIONS (1)
  - OEDEMA PERIPHERAL [None]
